FAERS Safety Report 13577162 (Version 1)
Quarter: 2017Q2

REPORT INFORMATION
  Report Type: Spontaneous
  Country: US (occurrence: US)
  Receive Date: 20170524
  Receipt Date: 20170524
  Transmission Date: 20170830
  Serious: Yes (Other)
  Sender: FDA-Public Use
  Company Number: US-BEH-2017080543

PATIENT
  Sex: Female
  Weight: 58.96 kg

DRUGS (17)
  1. HIZENTRA [Suspect]
     Active Substance: HUMAN IMMUNOGLOBULIN G
     Dosage: UNK
     Route: 058
  2. VITAMIN C [Concomitant]
     Active Substance: ASCORBIC ACID
  3. DHA OMEGA [Concomitant]
  4. NALTREXONE [Concomitant]
     Active Substance: NALTREXONE
  5. MULTIVITAMINS [Concomitant]
     Active Substance: VITAMINS
  6. ADRENAL CORTEX PREPARATIONS [Concomitant]
     Active Substance: UNSPECIFIED INGREDIENT
  7. CARISOPRODOL. [Concomitant]
     Active Substance: CARISOPRODOL
  8. DHA [Concomitant]
     Active Substance: DIETARY SUPPLEMENT
  9. EPIPEN [Concomitant]
     Active Substance: EPINEPHRINE
  10. HIZENTRA [Suspect]
     Active Substance: HUMAN IMMUNOGLOBULIN G
     Indication: IMMUNODEFICIENCY COMMON VARIABLE
     Dosage: 9 G, QW
     Route: 058
     Dates: start: 20160811
  11. MONOLAURIN [Concomitant]
  12. MONTELUKAST SODIUM. [Concomitant]
     Active Substance: MONTELUKAST SODIUM
  13. MUSCLEASE P5P [Concomitant]
  14. TRANSFER FACTOR [Concomitant]
  15. HIZENTRA [Suspect]
     Active Substance: HUMAN IMMUNOGLOBULIN G
     Dosage: UNK
     Route: 058
  16. ZYRTEC [Concomitant]
     Active Substance: CETIRIZINE HYDROCHLORIDE
  17. NATTOKINASE [Concomitant]
     Active Substance: NATTOKINASE

REACTIONS (3)
  - Neoplasm malignant [Unknown]
  - Blood count abnormal [Unknown]
  - Stiff person syndrome [Unknown]
